FAERS Safety Report 9882939 (Version 3)
Quarter: 2014Q2

REPORT INFORMATION
  Report Type: Report from Study
  Country: US (occurrence: US)
  Receive Date: 20140208
  Receipt Date: 20140523
  Transmission Date: 20141212
  Serious: Yes (Death)
  Sender: FDA-Public Use
  Company Number: US-ROCHE-1345818

PATIENT
  Age: 64 Year
  Sex: Female
  Weight: 81.72 kg

DRUGS (14)
  1. KADCYLA [Suspect]
     Indication: HER-2 POSITIVE BREAST CANCER
     Dosage: DOSE: 3.6MG/KG
     Route: 065
     Dates: start: 20130305, end: 20130326
  2. VICODIN [Concomitant]
  3. ALPRAZOLAM [Concomitant]
     Route: 048
  4. CALCIUM CARBONATE [Concomitant]
     Route: 048
  5. FISH OIL [Concomitant]
     Route: 048
  6. ASCORBIC ACID [Concomitant]
     Route: 048
  7. VITAMIN B COMPLEX [Concomitant]
     Route: 048
  8. BEPREVE [Concomitant]
     Route: 047
  9. TYLENOL [Concomitant]
     Route: 048
  10. MILK OF MAGNESIA [Concomitant]
     Route: 048
  11. CEPASTAT (UNITED STATES) [Concomitant]
     Route: 048
  12. MIRALAX [Concomitant]
     Route: 048
  13. SENNOSIDE [Concomitant]
     Route: 048
  14. WARFARIN [Concomitant]
     Route: 048

REACTIONS (2)
  - Breast cancer metastatic [Fatal]
  - Neuropathy peripheral [Unknown]
